FAERS Safety Report 6686055-2 (Version None)
Quarter: 2010Q2

REPORT INFORMATION
  Report Type: 
  Country: None (occurrence: None)
  Receive Date: 20100419
  Receipt Date: 20100416
  Transmission Date: 20101027
  Serious: Yes (Other)
  Sender: FDA-Public Use
  Company Number: US-MYLANLABS-2010S1006232

PATIENT
  Age: 16 Year
  Sex: Female

DRUGS (3)
  1. TOPIRAMATE TABLETS [Suspect]
     Indication: HEADACHE
     Route: 048
     Dates: start: 20091222, end: 20100113
  2. AZITHROMYCIN [Concomitant]
     Indication: LYME DISEASE
  3. MEPRON /01181501/ [Concomitant]
     Indication: LYME DISEASE

REACTIONS (6)
  - MOBILITY DECREASED [None]
  - PAIN IN EXTREMITY [None]
  - PRURITUS [None]
  - RASH ERYTHEMATOUS [None]
  - REACTION TO DRUG EXCIPIENTS [None]
  - SKIN CHAPPED [None]
